FAERS Safety Report 19829334 (Version 1)
Quarter: 2021Q3

REPORT INFORMATION
  Report Type: Spontaneous
  Country: US (occurrence: US)
  Receive Date: 20210914
  Receipt Date: 20210914
  Transmission Date: 20211014
  Serious: No
  Sender: FDA-Public Use
  Company Number: US-GILEAD-2021-0548268

PATIENT
  Age: 53 Year
  Sex: Female

DRUGS (13)
  1. POTASSIUM [Concomitant]
     Active Substance: POTASSIUM
  2. PENNSAID [Concomitant]
     Active Substance: DICLOFENAC SODIUM
  3. PAXIL CR [Concomitant]
     Active Substance: PAROXETINE HYDROCHLORIDE
  4. PRAVASTATIN SODIUM. [Concomitant]
     Active Substance: PRAVASTATIN SODIUM
  5. XANAX [Concomitant]
     Active Substance: ALPRAZOLAM
  6. PHENERGAN [Concomitant]
     Active Substance: PROMETHAZINE HYDROCHLORIDE
  7. BIKTARVY [Suspect]
     Active Substance: BICTEGRAVIR SODIUM\EMTRICITABINE\TENOFOVIR ALAFENAMIDE FUMARATE
     Indication: HIV INFECTION
     Dosage: 1 DOSAGE FORM, QD; 50MG/200MG/25MG
     Route: 048
     Dates: start: 201910
  8. ASPIRIN 81 [Concomitant]
     Active Substance: ASPIRIN
  9. VITAMIN D [COLECALCIFEROL] [Concomitant]
     Active Substance: CHOLECALCIFEROL
  10. CARVEDILOL. [Concomitant]
     Active Substance: CARVEDILOL
  11. VALSARTAN. [Concomitant]
     Active Substance: VALSARTAN
  12. PEPCID RPD [Concomitant]
     Active Substance: FAMOTIDINE
  13. TRIAMTERENE/HYDROCHLOROTHIAZIDE [Concomitant]
     Active Substance: HYDROCHLOROTHIAZIDE\TRIAMTERENE

REACTIONS (1)
  - Cough [Not Recovered/Not Resolved]
